FAERS Safety Report 25597655 (Version 1)
Quarter: 2025Q3

REPORT INFORMATION
  Report Type: Spontaneous
  Country: US (occurrence: US)
  Receive Date: 20250723
  Receipt Date: 20250723
  Transmission Date: 20251021
  Serious: Yes (Hospitalization, Other)
  Sender: ALEMBIC
  Company Number: US-ALEMBIC PHARMACUETICALS LIMITED-2025SCAL000852

PATIENT

DRUGS (2)
  1. DOXYCYCLINE [Suspect]
     Active Substance: DOXYCYCLINE
     Indication: Chlamydial infection
     Route: 065
  2. SULFAMETHOXAZOLE\TRIMETHOPRIM [Suspect]
     Active Substance: SULFAMETHOXAZOLE\TRIMETHOPRIM
     Indication: Chlamydial infection
     Route: 065

REACTIONS (22)
  - Drug reaction with eosinophilia and systemic symptoms [Recovered/Resolved]
  - Fatigue [Recovered/Resolved]
  - Chills [Recovered/Resolved]
  - Myalgia [Recovered/Resolved]
  - Pyrexia [Recovered/Resolved]
  - Lymphadenopathy [Recovered/Resolved]
  - Tachycardia [Recovered/Resolved]
  - Leukopenia [Recovered/Resolved]
  - Normochromic normocytic anaemia [Recovered/Resolved]
  - Asthenia [Recovered/Resolved]
  - Face oedema [Recovered/Resolved]
  - Periorbital swelling [Recovered/Resolved]
  - Oedema peripheral [Recovered/Resolved]
  - Rash maculo-papular [Recovered/Resolved]
  - Rash erythematous [Recovered/Resolved]
  - Exfoliative rash [Recovered/Resolved]
  - Hypertransaminasaemia [Recovered/Resolved]
  - Lymphocyte morphology abnormal [Recovered/Resolved]
  - Eosinophilia [Recovered/Resolved]
  - Liver injury [Recovered/Resolved]
  - Hypersensitivity [Recovered/Resolved]
  - Therapy cessation [Unknown]
